FAERS Safety Report 4614967-X (Version None)
Quarter: 2005Q1

REPORT INFORMATION
  Report Type: 
  Country: None (occurrence: None)
  Receive Date: 20050318
  Receipt Date: 20050318
  Transmission Date: 20050727
  Serious: Yes (Hospitalization)
  Sender: FDA-Public Use
  Company Number: None

PATIENT
  Age: 46 Year
  Sex: Male
  Weight: 156 kg

DRUGS (8)
  1. ENBREL [Suspect]
     Indication: PSORIATIC ARTHROPATHY
     Dosage: 50 MG TWICE A WEEK
  2. GLUCOTROL [Concomitant]
  3. PREVACID [Concomitant]
  4. COLCHICINE PAN [Concomitant]
  5. IBUPROFEN [Concomitant]
  6. LASIX [Concomitant]
  7. ZAROXOLYN [Concomitant]
  8. KEFLEX [Concomitant]

REACTIONS (2)
  - RENAL FAILURE ACUTE [None]
  - RESPIRATORY FAILURE [None]
